FAERS Safety Report 7568297-7 (Version None)
Quarter: 2011Q2

REPORT INFORMATION
  Report Type: 
  Country: None (occurrence: None)
  Receive Date: 20110623
  Receipt Date: 20110609
  Transmission Date: 20111010
  Serious: Yes (Other)
  Sender: FDA-Public Use
  Company Number: CA-JNJFOC-20110605783

PATIENT
  Sex: Female
  Weight: 115.5 kg

DRUGS (6)
  1. MULTI-VITAMINS [Concomitant]
     Route: 065
  2. ASPIRIN [Concomitant]
     Route: 065
  3. SYNTHROID [Concomitant]
     Route: 065
  4. METHOTREXATE [Concomitant]
     Route: 065
  5. REMICADE [Suspect]
     Indication: RHEUMATOID ARTHRITIS
     Route: 042
     Dates: start: 20100707
  6. FOLIC ACID [Concomitant]
     Route: 065

REACTIONS (1)
  - DIVERTICULITIS [None]
